FAERS Safety Report 22135181 (Version 1)
Quarter: 2023Q1

REPORT INFORMATION
  Report Type: Spontaneous
  Country: US (occurrence: None)
  Receive Date: 20230323
  Receipt Date: 20230323
  Transmission Date: 20230417
  Serious: Yes (Life-Threatening)
  Sender: FDA-Public Use
  Company Number: None

PATIENT
  Age: 28 Year
  Sex: Female
  Weight: 47.17 kg

DRUGS (2)
  1. SKYLA [Suspect]
     Active Substance: LEVONORGESTREL
  2. UNSPECIFIED INGREDIENT [Suspect]
     Active Substance: UNSPECIFIED INGREDIENT

REACTIONS (10)
  - Device breakage [None]
  - Complication associated with device [None]
  - Pregnancy with contraceptive device [None]
  - Rash [None]
  - Embedded device [None]
  - Skin injury [None]
  - Emotional distress [None]
  - Pain [None]
  - Rash [None]
  - Uterine pain [None]

NARRATIVE: CASE EVENT DATE: 20200501
